FAERS Safety Report 5725722-1 (Version None)
Quarter: 2008Q2

REPORT INFORMATION
  Report Type: 
  Country: None (occurrence: None)
  Receive Date: 20080429
  Receipt Date: 20080422
  Transmission Date: 20081010
  Serious: Yes (Death, Hospitalization)
  Sender: FDA-Public Use
  Company Number: 2008SP003691

PATIENT
  Age: 53 Year
  Sex: Male
  Weight: 114.3065 kg

DRUGS (6)
  1. PEG-INTRON [Suspect]
     Indication: HEPATITIS C
     Dosage: 150 MCG QW SC
     Route: 058
     Dates: start: 20070921, end: 20080106
  2. REBETOL [Suspect]
     Indication: HEPATITIS C
     Dosage: 1400 MG QD PO
     Route: 048
     Dates: start: 20070921, end: 20080106
  3. LASIX [Concomitant]
  4. ALDACTONE [Concomitant]
  5. PROTONIX [Concomitant]
  6. GLIPIZIDE [Concomitant]

REACTIONS (17)
  - ABDOMINAL PAIN UPPER [None]
  - BACK PAIN [None]
  - BACTERAEMIA [None]
  - BLOOD POTASSIUM INCREASED [None]
  - BLOOD PRESSURE DECREASED [None]
  - BLOOD SODIUM DECREASED [None]
  - BRONCHITIS [None]
  - CEREBROVASCULAR ACCIDENT [None]
  - COMA [None]
  - HEPATIC CIRRHOSIS [None]
  - MALAISE [None]
  - MYOCARDIAL INFARCTION [None]
  - PHARYNGOLARYNGEAL PAIN [None]
  - PYREXIA [None]
  - RENAL FAILURE [None]
  - SCIATICA [None]
  - TREATMENT NONCOMPLIANCE [None]
